FAERS Safety Report 14659796 (Version 1)
Quarter: 2018Q1

REPORT INFORMATION
  Report Type: Spontaneous
  Country: JP (occurrence: JP)
  Receive Date: 20180320
  Receipt Date: 20180320
  Transmission Date: 20180509
  Serious: Yes (Hospitalization, Other)
  Sender: FDA-Public Use
  Company Number: JP-JNJFOC-20180317987

PATIENT
  Age: 49 Year
  Sex: Male
  Weight: 66.8 kg

DRUGS (5)
  1. VOLIBRIS [Concomitant]
     Active Substance: AMBRISENTAN
     Route: 048
     Dates: start: 201005
  2. TRAMADOL HYDROCHLORIDE. [Suspect]
     Active Substance: TRAMADOL HYDROCHLORIDE
     Indication: PAIN
     Route: 048
     Dates: start: 201612, end: 2017
  3. REMODULIN [Suspect]
     Active Substance: TREPROSTINIL
     Indication: PULMONARY ARTERIAL HYPERTENSION
     Route: 058
     Dates: start: 20161125
  4. ADCIRCA [Concomitant]
     Active Substance: TADALAFIL
     Route: 048
     Dates: start: 201005
  5. REVATIO [Concomitant]
     Active Substance: SILDENAFIL CITRATE
     Route: 048
     Dates: start: 200808

REACTIONS (12)
  - Hypoaesthesia [Unknown]
  - Arthralgia [Unknown]
  - Gait disturbance [Unknown]
  - Heart rate increased [Unknown]
  - Nausea [Recovered/Resolved]
  - Pain [Unknown]
  - Pulmonary oedema [Unknown]
  - Flushing [Unknown]
  - Dysgeusia [Unknown]
  - Deafness unilateral [Unknown]
  - Platelet count decreased [Unknown]
  - Headache [Unknown]

NARRATIVE: CASE EVENT DATE: 201612
